FAERS Safety Report 5576222-3 (Version None)
Quarter: 2007Q4

REPORT INFORMATION
  Report Type: 
  Country: None (occurrence: None)
  Receive Date: 20071228
  Receipt Date: 20071221
  Transmission Date: 20080405
  Serious: No
  Sender: FDA-Public Use
  Company Number: CH-WYE-G00675607

PATIENT
  Age: 55 Year
  Sex: Male

DRUGS (4)
  1. EFFEXOR [Suspect]
     Indication: DEPRESSION
     Route: 048
     Dates: start: 20071030, end: 20071111
  2. EFFEXOR [Suspect]
     Route: 048
     Dates: start: 20071112, end: 20071210
  3. EFFEXOR [Suspect]
     Route: 048
     Dates: start: 20071211
  4. CITALOPRAM HYDROBROMIDE [Concomitant]
     Indication: DEPRESSION
     Dates: start: 20070925

REACTIONS (4)
  - INJURY [None]
  - LOSS OF CONSCIOUSNESS [None]
  - NIGHTMARE [None]
  - SOMNAMBULISM [None]
